FAERS Safety Report 5935152-5 (Version None)
Quarter: 2008Q4

REPORT INFORMATION
  Report Type: 
  Country: None (occurrence: None)
  Receive Date: 20081030
  Receipt Date: 20081024
  Transmission Date: 20090506
  Serious: Yes (Life-Threatening, Hospitalization, Disabling)
  Sender: FDA-Public Use
  Company Number: US-BAYER-200615609BWH

PATIENT
  Age: 64 Year
  Sex: Female
  Weight: 83 kg

DRUGS (17)
  1. PLACEBO TO SORAFENIB [Suspect]
     Indication: NON-SMALL CELL LUNG CANCER
     Dosage: TOTAL DAILY DOSE: 800 MG  UNIT DOSE: 200 MG
     Route: 048
     Dates: start: 20060901, end: 20060914
  2. PACLITAXEL [Suspect]
     Dosage: AS USED: 376 MG
     Route: 042
     Dates: start: 20060831, end: 20060831
  3. CARBOPLATIN [Suspect]
     Dosage: AS USED: 660 MG
     Route: 042
     Dates: start: 20060831, end: 20060831
  4. NATURE'S WAY BARLEY GRASS [Concomitant]
     Indication: MEDICAL DIET
     Dosage: TOTAL DAILY DOSE: 20 ML
     Route: 048
  5. CHLOROXYGEN [Concomitant]
     Indication: MEDICAL DIET
     Dosage: TOTAL DAILY DOSE: 72 GTT
  6. KYO-GREEN [Concomitant]
     Indication: MEDICAL DIET
     Dosage: TOTAL DAILY DOSE: 20 ML
  7. AUSTRALIAN GREEN TEA [Concomitant]
     Indication: MEDICAL DIET
     Dosage: TOTAL DAILY DOSE: 28 GTT
  8. VITAMIN C CRYSTALS [Concomitant]
     Indication: VITAMIN SUPPLEMENTATION
  9. NATURE'S WAY ALIVE [Concomitant]
     Indication: MEDICAL DIET
  10. PREDNISONE TAB [Concomitant]
     Indication: INFLAMMATION
  11. ZOFRAN [Concomitant]
     Indication: NAUSEA
     Dosage: TOTAL DAILY DOSE: 16 MG
     Route: 048
     Dates: start: 20060828
  12. COMPAZINE [Concomitant]
     Indication: NAUSEA
     Dosage: TOTAL DAILY DOSE: 30 MG
     Dates: start: 20060828
  13. DEXAMETHASONE [Concomitant]
     Indication: PROPHYLAXIS OF NAUSEA AND VOMITING
     Dosage: TOTAL DAILY DOSE: 8 MG
     Dates: start: 20060828
  14. VITAMIN B [Concomitant]
  15. FISH OIL [Concomitant]
  16. PROBONIC [Concomitant]
  17. SELENIUM [Concomitant]

REACTIONS (4)
  - ATRIAL FIBRILLATION [None]
  - DEEP VEIN THROMBOSIS [None]
  - PERICARDIAL EFFUSION [None]
  - PULMONARY EMBOLISM [None]
